FAERS Safety Report 6811830-0 (Version None)
Quarter: 2010Q3

REPORT INFORMATION
  Report Type: 
  Country: None (occurrence: None)
  Receive Date: 20100701
  Receipt Date: 20100621
  Transmission Date: 20110219
  Serious: No
  Sender: FDA-Public Use
  Company Number: JP-BAYER-201011456BYL

PATIENT
  Age: 77 Year
  Sex: Male
  Weight: 64 kg

DRUGS (14)
  1. NEXAVAR [Suspect]
     Indication: HEPATIC NEOPLASM MALIGNANT
     Dosage: UNIT DOSE: 200 MG
     Route: 048
     Dates: start: 20100129, end: 20100207
  2. NEXAVAR [Suspect]
     Dosage: UNIT DOSE: 200 MG
     Route: 048
     Dates: start: 20100208, end: 20100215
  3. NEXAVAR [Suspect]
     Dosage: TOTAL DAILY DOSE: 200 MG  UNIT DOSE: 200 MG
     Route: 048
     Dates: start: 20100216
  4. CASODEX [Concomitant]
     Dates: start: 20090831
  5. URSO 250 [Concomitant]
     Route: 048
  6. LASIX [Concomitant]
     Route: 048
     Dates: start: 20090204
  7. ZANTAC [Concomitant]
     Route: 048
  8. AMINOLEBAN EN [Concomitant]
     Route: 048
     Dates: start: 20070201
  9. NOVORAPID 30 MIX [Concomitant]
     Route: 042
     Dates: start: 20080507
  10. CALONAL [Concomitant]
     Dosage: UNIT DOSE: 50 %
     Route: 048
  11. TENORMIN [Concomitant]
     Route: 048
  12. PORTOLAC [Concomitant]
     Route: 048
     Dates: start: 20100203
  13. UREPEARL [Concomitant]
     Route: 061
     Dates: start: 20100129
  14. KN 1 [Concomitant]
     Route: 042
     Dates: start: 20100315, end: 20100315

REACTIONS (7)
  - AMMONIA INCREASED [None]
  - DYSPHONIA [None]
  - EPISTAXIS [None]
  - EYELID OEDEMA [None]
  - MUSCLE SPASMS [None]
  - RASH [None]
  - WEIGHT DECREASED [None]
